FAERS Safety Report 12705094 (Version 1)
Quarter: 2016Q3

REPORT INFORMATION
  Report Type: Spontaneous
  Country: US (occurrence: US)
  Receive Date: 20160831
  Receipt Date: 20160831
  Transmission Date: 20161109
  Serious: No
  Sender: FDA-Public Use
  Company Number: US-ASTRAZENECA-2016SE86872

PATIENT
  Age: 2 Year
  Sex: Male

DRUGS (2)
  1. NEXIUM [Suspect]
     Active Substance: ESOMEPRAZOLE MAGNESIUM
     Indication: GASTRIC DISORDER
     Dosage: 10.0MG UNKNOWN
     Route: 048
  2. PRILOSEC [Suspect]
     Active Substance: OMEPRAZOLE MAGNESIUM
     Route: 048

REACTIONS (8)
  - Medication residue present [Unknown]
  - Mass [Unknown]
  - Rash [Unknown]
  - Nasal oedema [Unknown]
  - Intentional product misuse [Unknown]
  - Diarrhoea [Unknown]
  - Eczema [Unknown]
  - Secretion discharge [Unknown]
